FAERS Safety Report 8468883 (Version 5)
Quarter: 2013Q3

REPORT INFORMATION
  Report Type: Report from Study
  Country: CA (occurrence: CA)
  Receive Date: 20120321
  Receipt Date: 20130827
  Transmission Date: 20140515
  Serious: Yes (Life-Threatening, Hospitalization, Other)
  Sender: FDA-Public Use
  Company Number: CA-ROCHE-1046563

PATIENT
  Age: 8 Year
  Sex: Female
  Weight: 39 kg

DRUGS (13)
  1. TOCILIZUMAB [Suspect]
     Indication: JUVENILE IDIOPATHIC ARTHRITIS
     Route: 042
     Dates: start: 20111014
  2. TOCILIZUMAB [Suspect]
     Route: 042
     Dates: start: 20120113
  3. TOCILIZUMAB [Suspect]
     Route: 042
     Dates: start: 20120127
  4. TOCILIZUMAB [Suspect]
     Route: 042
     Dates: start: 20120210
  5. TOCILIZUMAB [Suspect]
     Route: 042
     Dates: start: 20120227
  6. METHOTREXATE [Concomitant]
     Route: 058
  7. NAPROXEN [Concomitant]
  8. FOLIC ACID [Concomitant]
  9. PREDNISONE [Concomitant]
     Route: 065
  10. PREDNISONE [Concomitant]
     Route: 065
     Dates: start: 20120308
  11. HUMIRA [Concomitant]
  12. ENBREL [Concomitant]
  13. ORENCIA [Concomitant]

REACTIONS (12)
  - Diarrhoea [Recovered/Resolved]
  - Vomiting [Recovered/Resolved]
  - Drug ineffective [Unknown]
  - Loss of consciousness [Recovered/Resolved]
  - Septic shock [Recovered/Resolved]
  - Liver function test abnormal [Recovered/Resolved]
  - Pleural effusion [Recovered/Resolved]
  - Hypocalcaemia [Recovered/Resolved]
  - Hypokalaemia [Recovered/Resolved]
  - Immunosuppression [Recovered/Resolved]
  - Gastroenteritis viral [Recovered/Resolved]
  - Hypotension [Unknown]
